FAERS Safety Report 8218171-8 (Version None)
Quarter: 2012Q1

REPORT INFORMATION
  Report Type: 
  Country: None (occurrence: None)
  Receive Date: 20120316
  Receipt Date: 20120316
  Transmission Date: 20120608
  Serious: Yes (Hospitalization)
  Sender: FDA-Public Use
  Company Number: None

PATIENT
  Sex: Female
  Weight: 123.8 kg

DRUGS (6)
  1. TAXOL [Suspect]
     Indication: BREAST CANCER
     Dosage: 80 MG/M2
     Dates: start: 20120105
  2. CISPLATIN [Suspect]
     Indication: BREAST CANCER
     Dosage: 25MG/M2
     Dates: start: 20120105
  3. FLAGYL [Concomitant]
  4. NORMAL SALINE INFUSION [Concomitant]
  5. PLACEBO [Suspect]
     Indication: BREAST CANCER
     Dosage: 5MG OR 5MG PO DAILY
     Route: 048
     Dates: start: 20120105
  6. CIPROFLOXACIN HYDROCHLORIDE [Concomitant]

REACTIONS (6)
  - DEHYDRATION [None]
  - URINARY TRACT INFECTION [None]
  - HEAD INJURY [None]
  - PRESYNCOPE [None]
  - VOMITING [None]
  - FALL [None]
